FAERS Safety Report 21793708 (Version 1)
Quarter: 2022Q4

REPORT INFORMATION
  Report Type: Report from Study
  Country: US (occurrence: US)
  Receive Date: 20221229
  Receipt Date: 20221229
  Transmission Date: 20230113
  Serious: No
  Sender: FDA-Public Use
  Company Number: US-ABBVIE-4252563

PATIENT
  Sex: Female

DRUGS (1)
  1. IMBRUVICA [Suspect]
     Active Substance: IBRUTINIB
     Indication: Chronic lymphocytic leukaemia
     Dosage: FORM STRENGTH 140 MG?EVENT START DATE WAS 2022 AND CESSATION DATE WAS2022
     Route: 048
     Dates: start: 20220519

REACTIONS (3)
  - Dry mouth [Unknown]
  - Balance disorder [Unknown]
  - Oral pain [Recovered/Resolved]
